FAERS Safety Report 19690977 (Version 2)
Quarter: 2021Q3

REPORT INFORMATION
  Report Type: Spontaneous
  Country: HK (occurrence: HK)
  Receive Date: 20210812
  Receipt Date: 20210824
  Transmission Date: 20211014
  Serious: Yes (Other)
  Sender: FDA-Public Use
  Company Number: HK-BAYER-2021-189072

PATIENT
  Sex: Male

DRUGS (1)
  1. NUBEQA [Suspect]
     Active Substance: DAROLUTAMIDE
     Indication: HORMONE-REFRACTORY PROSTATE CANCER
     Dosage: DURATION AROUND 2.5 MONTHS
     Dates: start: 202104, end: 202107

REACTIONS (2)
  - Lower limb fracture [Recovering/Resolving]
  - Metastases to bone [None]

NARRATIVE: CASE EVENT DATE: 2021
